FAERS Safety Report 9049818 (Version 2)
Quarter: 2013Q1

REPORT INFORMATION
  Report Type: Report from Study
  Country: US (occurrence: US)
  Receive Date: 20130205
  Receipt Date: 20130219
  Transmission Date: 20140127
  Serious: Yes (Hospitalization)
  Sender: FDA-Public Use
  Company Number: US-ACTELION-A-NJ2013-78464

PATIENT
  Age: 68 Year
  Sex: Male

DRUGS (2)
  1. TRACLEER [Suspect]
     Indication: PULMONARY ARTERIAL HYPERTENSION
     Dosage: UNK
     Route: 048
  2. LASIX [Suspect]
     Dosage: 200 MG, UNK

REACTIONS (7)
  - Renal failure [Unknown]
  - Fluid retention [Unknown]
  - Oedema peripheral [Unknown]
  - Condition aggravated [Unknown]
  - Urinary tract infection [Unknown]
  - Red blood cells urine [Unknown]
  - Malaise [Unknown]
